FAERS Safety Report 20985825 (Version 1)
Quarter: 2022Q2

REPORT INFORMATION
  Report Type: Spontaneous
  Country: FR (occurrence: FR)
  Receive Date: 20220621
  Receipt Date: 20220621
  Transmission Date: 20220721
  Serious: Yes (Life-Threatening, Other)
  Sender: FDA-Public Use
  Company Number: FR-DENTSPLY-2022SCDP000163

PATIENT
  Age: 77 Year
  Sex: Male
  Weight: 75 kg

DRUGS (6)
  1. EPINEPHRINE BITARTRATE\LIDOCAINE HYDROCHLORIDE [Suspect]
     Active Substance: EPINEPHRINE BITARTRATE\LIDOCAINE HYDROCHLORIDE
     Indication: Induction of anaesthesia
     Dosage: 20 MILLIGRAM TOTAL
     Route: 042
     Dates: start: 20220523, end: 20220523
  2. ROCURONIUM BROMIDE [Suspect]
     Active Substance: ROCURONIUM BROMIDE
     Indication: Induction of anaesthesia
     Dosage: 40 MILLIGRAM TOTAL
     Route: 042
     Dates: start: 20220523, end: 20220523
  3. SUFENTANIL [Suspect]
     Active Substance: SUFENTANIL
     Indication: Induction of anaesthesia
     Dosage: 20 MICROGRAM TOTAL
     Route: 042
     Dates: start: 20220523, end: 20220523
  4. ROPIVACAINE HYDROCHLORIDE [Suspect]
     Active Substance: ROPIVACAINE HYDROCHLORIDE
     Indication: Local anaesthesia
     Dosage: 95 MILLIGRAM TOTAL
     Route: 051
     Dates: start: 20220523, end: 20220523
  5. DEXAMETHASONE [Suspect]
     Active Substance: DEXAMETHASONE
     Indication: Induction of anaesthesia
     Dosage: 8 MILLIGRAM TOTAL
     Route: 042
     Dates: start: 20220523, end: 20220523
  6. PROPOFOL [Suspect]
     Active Substance: PROPOFOL
     Indication: Induction of anaesthesia
     Dosage: 250 MILLIGRAM TOTAL
     Route: 042
     Dates: start: 20220523, end: 20220523

REACTIONS (1)
  - Anaphylactic shock [Recovered/Resolved]

NARRATIVE: CASE EVENT DATE: 20220523
